FAERS Safety Report 25179066 (Version 1)
Quarter: 2025Q2

REPORT INFORMATION
  Report Type: Spontaneous
  Country: US (occurrence: US)
  Receive Date: 20250409
  Receipt Date: 20250409
  Transmission Date: 20250716
  Serious: No
  Sender: SANOFI AVENTIS
  Company Number: US-SANOFI-02478422

PATIENT
  Age: 72 Year
  Sex: Female

DRUGS (2)
  1. LANTUS SOLOSTAR [Suspect]
     Active Substance: INSULIN GLARGINE
     Indication: Diabetes mellitus
     Dosage: QD
  2. LANTUS SOLOSTAR [Suspect]
     Active Substance: INSULIN GLARGINE
     Dosage: 10-12 UNITS AM/ USUALLY 20 UNITS PM BID AND DRUG TREATMENT DURATION:FOR YEARS
     Route: 065

REACTIONS (2)
  - Intentional product misuse [Unknown]
  - Inappropriate schedule of product administration [Unknown]
